FAERS Safety Report 8418705-4 (Version None)
Quarter: 2012Q2

REPORT INFORMATION
  Report Type: 
  Country: None (occurrence: None)
  Receive Date: 20120607
  Receipt Date: 20120601
  Transmission Date: 20120825
  Serious: Yes (Other)
  Sender: FDA-Public Use
  Company Number: US-B.I. PHARMACEUTICALS,INC./RIDGEFIELD-2012-BP-13009PF

PATIENT
  Sex: Female

DRUGS (2)
  1. SPIRIVA [Suspect]
  2. SPIRIVA [Suspect]
     Route: 048

REACTIONS (2)
  - DEMENTIA [None]
  - INCORRECT ROUTE OF DRUG ADMINISTRATION [None]
